FAERS Safety Report 8214488-1 (Version None)
Quarter: 2012Q1

REPORT INFORMATION
  Report Type: 
  Country: None (occurrence: None)
  Receive Date: 20120316
  Receipt Date: 20120316
  Transmission Date: 20120608
  Serious: No
  Sender: FDA-Public Use
  Company Number: None

PATIENT
  Age: 65 Year
  Sex: Female
  Weight: 97.068 kg

DRUGS (2)
  1. ATORVASTATIN [Concomitant]
     Indication: BLOOD CHOLESTEROL
     Dates: start: 20120225, end: 20120229
  2. LIPITOR [Suspect]
     Indication: BLOOD CHOLESTEROL
     Dates: start: 20121108, end: 20121113

REACTIONS (12)
  - MUSCLE SPASMS [None]
  - BLOOD GLUCOSE INCREASED [None]
  - HYPOTENSION [None]
  - MYALGIA [None]
  - FALL [None]
  - THINKING ABNORMAL [None]
  - MUSCLE DISORDER [None]
  - BODY TEMPERATURE INCREASED [None]
  - HEADACHE [None]
  - ARTHRALGIA [None]
  - ABASIA [None]
  - CONCUSSION [None]
